FAERS Safety Report 15065953 (Version 1)
Quarter: 2018Q2

REPORT INFORMATION
  Report Type: Spontaneous
  Country: US (occurrence: US)
  Receive Date: 20180605
  Receipt Date: 20180605
  Transmission Date: 20180711
  Serious: No
  Sender: FDA-Public Use
  Company Number: None

PATIENT
  Age: 77 Year
  Sex: Female

DRUGS (7)
  1. MONTELUKAST [Concomitant]
     Active Substance: MONTELUKAST SODIUM
  2. METOPROLOL TARTRATE. [Concomitant]
     Active Substance: METOPROLOL TARTRATE
  3. MINOXIDIL. [Concomitant]
     Active Substance: MINOXIDIL
  4. NIFEDIPINE. [Concomitant]
     Active Substance: NIFEDIPINE
  5. OCALIVA [Suspect]
     Active Substance: OBETICHOLIC ACID
     Indication: PRIMARY BILIARY CHOLANGITIS
     Route: 048
     Dates: start: 20180420
  6. LOSARTAN. [Concomitant]
     Active Substance: LOSARTAN
  7. PROCTOZONE [Concomitant]
     Active Substance: HYDROCORTISONE

REACTIONS (1)
  - Fatigue [None]

NARRATIVE: CASE EVENT DATE: 20180404
